FAERS Safety Report 5579776-6 (Version None)
Quarter: 2007Q4

REPORT INFORMATION
  Report Type: 
  Country: None (occurrence: None)
  Receive Date: 20071130
  Receipt Date: 20070629
  Transmission Date: 20080405
  Serious: No
  Sender: FDA-Public Use
  Company Number: US200707002017

PATIENT
  Age: 60 Year
  Sex: Female
  Weight: 95.2 kg

DRUGS (8)
  1. BYETTA [Suspect]
     Indication: TYPE 2 DIABETES MELLITUS
     Dosage: 5 UG, 2/D, SUBCUTANEOUS
     Route: 058
     Dates: start: 20070611
  2. LISINOPRIL                   /USA/ (LISINOPRIL) [Concomitant]
  3. VERAPAMIL HCL                        ( VERAPAMIL HYDROCHLORIDE) [Concomitant]
  4. XANAX                          /USA/ (ALPRAZOLAM) [Concomitant]
  5. WELLBUTRIN [Concomitant]
  6. VYTORIN [Concomitant]
  7. METFORMIN HCL [Concomitant]
  8. GLIPIZIDE [Concomitant]

REACTIONS (2)
  - CHEST DISCOMFORT [None]
  - WEIGHT DECREASED [None]
